FAERS Safety Report 12841751 (Version 2)
Quarter: 2017Q4

REPORT INFORMATION
  Report Type: Spontaneous
  Country: US (occurrence: US)
  Receive Date: 20161012
  Receipt Date: 20171005
  Transmission Date: 20180320
  Serious: No
  Sender: FDA-Public Use
  Company Number: US-SEATTLE GENETICS-2015SGN01881

PATIENT
  Sex: Male

DRUGS (2)
  1. ADCETRIS [Suspect]
     Active Substance: BRENTUXIMAB VEDOTIN
     Indication: HODGKIN^S DISEASE
     Dosage: 1.2 MG/KG, UNK
     Route: 065
  2. ADCETRIS [Suspect]
     Active Substance: BRENTUXIMAB VEDOTIN
     Dosage: 1.8 MG/KG, UNK
     Route: 065

REACTIONS (15)
  - Muscle spasms [Unknown]
  - Nasopharyngitis [Unknown]
  - Neck pain [Unknown]
  - Hypoaesthesia [Unknown]
  - Fatigue [Unknown]
  - Paraesthesia [Unknown]
  - Neuropathy peripheral [Unknown]
  - Blepharospasm [Unknown]
  - Diarrhoea [Unknown]
  - Back pain [Unknown]
  - Erythema [Unknown]
  - Dizziness [Unknown]
  - Pain in extremity [Unknown]
  - Burning sensation [Unknown]
  - Rash pruritic [Unknown]

NARRATIVE: CASE EVENT DATE: 20160709
